FAERS Safety Report 8084290-2 (Version None)
Quarter: 2012Q1

REPORT INFORMATION
  Report Type: 
  Country: None (occurrence: None)
  Receive Date: 20120128
  Receipt Date: 20110307
  Transmission Date: 20120608
  Serious: Yes (Hospitalization)
  Sender: FDA-Public Use
  Company Number: US-ABBOTT-11P-163-0709957-00

PATIENT
  Age: 46 Year
  Sex: Female

DRUGS (14)
  1. CALCIUM [Concomitant]
     Indication: MINERAL SUPPLEMENTATION
  2. GLUCOSAMINE CHONDROITIN [Concomitant]
     Indication: RHEUMATOID ARTHRITIS
     Dosage: 15/1200 MG; 1 IN 1 DAY
  3. FLEXERIL [Concomitant]
     Indication: ARTHRALGIA
  4. ORENCIA [Concomitant]
     Indication: RHEUMATOID ARTHRITIS
  5. SIMVASTATIN [Concomitant]
     Indication: BLOOD CHOLESTEROL INCREASED
  6. REQUIP [Concomitant]
     Indication: OSTEOPENIA
     Dosage: 5 MG/100 ML; 1 IN 2 YEARS
  7. CELEBREX [Concomitant]
     Indication: RHEUMATOID ARTHRITIS
  8. KLONOPIN [Concomitant]
     Indication: INSOMNIA
  9. MULTI-VITAMIN [Concomitant]
     Indication: VITAMIN SUPPLEMENTATION
  10. METHOTREXATE [Concomitant]
     Indication: RHEUMATOID ARTHRITIS
     Dosage: EIGHT TABS.
  11. FOLIC ACID [Concomitant]
     Indication: RHEUMATOID ARTHRITIS
  12. HUMIRA [Suspect]
     Indication: RHEUMATOID ARTHRITIS
     Route: 058
     Dates: start: 19980101
  13. VICODIN [Concomitant]
     Indication: ARTHRALGIA
     Dosage: 5/500 - TAKES TWO TO THREE A DAY
  14. PERCOCET [Concomitant]
     Indication: ARTHRALGIA
     Dosage: 5/325 MG AS NEEDED.

REACTIONS (4)
  - JOINT DISLOCATION [None]
  - ARTHRALGIA [None]
  - HIP ARTHROPLASTY [None]
  - INJECTION SITE PAIN [None]
